FAERS Safety Report 25699987 (Version 1)
Quarter: 2025Q3

REPORT INFORMATION
  Report Type: Spontaneous
  Country: EU (occurrence: EU)
  Receive Date: 20250819
  Receipt Date: 20250819
  Transmission Date: 20251020
  Serious: Yes (Other)
  Sender: BIOGEN
  Company Number: None

PATIENT
  Age: 2 Year
  Sex: Male
  Weight: 15 kg

DRUGS (1)
  1. TECFIDERA [Suspect]
     Active Substance: DIMETHYL FUMARATE
     Indication: Product used for unknown indication
     Route: 050

REACTIONS (4)
  - Erythema [Unknown]
  - Rash [Unknown]
  - Wrong patient [Unknown]
  - Product use issue [Unknown]

NARRATIVE: CASE EVENT DATE: 20221201
